FAERS Safety Report 4840168-6 (Version None)
Quarter: 2005Q4

REPORT INFORMATION
  Report Type: 
  Country: None (occurrence: None)
  Receive Date: 20051125
  Receipt Date: 20051117
  Transmission Date: 20060501
  Serious: Yes (Other)
  Sender: FDA-Public Use
  Company Number: 8523

PATIENT
  Age: 31 Year
  Sex: Female

DRUGS (2)
  1. SEPTOCAINE [Suspect]
     Indication: DENTAL TREATMENT
     Dosage: 1 CARPULE INJECTED
  2. SEPTOCAINE [Suspect]
     Indication: LOCAL ANAESTHESIA
     Dosage: 1 CARPULE INJECTED

REACTIONS (3)
  - DYSGEUSIA [None]
  - GLOSSODYNIA [None]
  - PARAESTHESIA ORAL [None]
